FAERS Safety Report 7914799-0 (Version None)
Quarter: 2011Q4

REPORT INFORMATION
  Report Type: 
  Country: None (occurrence: None)
  Receive Date: 20111115
  Receipt Date: 20111110
  Transmission Date: 20120403
  Serious: Yes (Death)
  Sender: FDA-Public Use
  Company Number: PHHY2011GB099410

PATIENT
  Age: 14 Year
  Sex: Male

DRUGS (1)
  1. MINOCYCLINE HCL [Suspect]
     Indication: ACNE
     Route: 048

REACTIONS (7)
  - TACHYPNOEA [None]
  - IDIOSYNCRATIC DRUG REACTION [None]
  - HYPOXIA [None]
  - SHOCK [None]
  - LACTIC ACIDOSIS [None]
  - DYSPNOEA [None]
  - TACHYCARDIA [None]
